FAERS Safety Report 8848835 (Version 1)
Quarter: 2012Q4

REPORT INFORMATION
  Report Type: Spontaneous
  Country: US (occurrence: None)
  Receive Date: 20121015
  Receipt Date: 20121015
  Transmission Date: 20130627
  Serious: Yes (Hospitalization)
  Sender: FDA-Public Use
  Company Number: AUR-APL-2012-04384

PATIENT
  Age: 67 Year
  Sex: Male

DRUGS (6)
  1. LISINOPRIL (LISINOPRIL) [Suspect]
     Indication: HYPERTENSION
  2. HYDROCHLOROTHIAZIDE (HYDROCHLOROTHIAZIDE) [Suspect]
     Indication: HYPERTENSION
  3. NIFEDI PINE (NI FEDI PINE ) [Suspect]
     Indication: HYPERTENSION
     Route: 048
  4. CARDURA (DOXAZOSIN MESILATE) [Suspect]
     Indication: HYPERTENSION
  5. PACLITAXEL (PACLITAXEL) [Suspect]
     Indication: NON-SMALL CELL LUNG CANCER
     Dosage: total)
     Dates: start: 20111107
  6. CARBOPLATIN (CARBOPLATIN) [Suspect]
     Indication: NON-SMALL CELL LUNG CANCER
     Dosage: total)
     Dates: start: 20111107

REACTIONS (12)
  - Hypotension [None]
  - Dehydration [None]
  - Gait disturbance [None]
  - Gait disturbance [None]
  - Weight decreased [None]
  - Decreased appetite [None]
  - Odynophagia [None]
  - Cough [None]
  - Blood urea increased [None]
  - Hypovolaemia [None]
  - Blood potassium decreased [None]
  - Hypophagia [None]
